FAERS Safety Report 15298468 (Version 1)
Quarter: 2018Q3

REPORT INFORMATION
  Report Type: Spontaneous
  Country: US (occurrence: US)
  Receive Date: 20180808
  Receipt Date: 20180808
  Transmission Date: 20181010
  Serious: Yes (Hospitalization, Disabling, Other)
  Sender: FDA-Public Use
  Company Number: None

PATIENT
  Age: 63 Year
  Sex: Male
  Weight: 132.75 kg

DRUGS (20)
  1. METFORMIN AND INSULIN SLIDING SCALE [Concomitant]
  2. SPIRIVA [Concomitant]
     Active Substance: TIOTROPIUM BROMIDE MONOHYDRATE
  3. VIT A + D OINTMENT [Concomitant]
  4. LYRCA [Concomitant]
  5. VITAMIN B3 [Concomitant]
     Active Substance: NIACIN
  6. NEOSPORIN ANTIBIOTIC + PAIN [Concomitant]
  7. ISOSORBIDE. [Concomitant]
     Active Substance: ISOSORBIDE
  8. METOPROLOL. [Concomitant]
     Active Substance: METOPROLOL
  9. ASPIRIN. [Concomitant]
     Active Substance: ASPIRIN
  10. SYNTHROID [Concomitant]
     Active Substance: LEVOTHYROXINE SODIUM
  11. PRAMIPEXOLE. [Concomitant]
     Active Substance: PRAMIPEXOLE
  12. VITAMIN D3 [Concomitant]
     Active Substance: CHOLECALCIFEROL
  13. CLOPIDOGREL [Concomitant]
     Active Substance: CLOPIDOGREL BISULFATE
  14. ZINC. [Concomitant]
     Active Substance: ZINC
  15. HYDROCHLOROTHYAZIDE [Concomitant]
     Active Substance: HYDROCHLOROTHIAZIDE
  16. R ANEXA [Concomitant]
  17. CALAMINE LOTION [Concomitant]
     Active Substance: CALAMINE LOTION
  18. VANCOMYCIN [Suspect]
     Active Substance: VANCOMYCIN
     Indication: CELLULITIS
     Dosage: ?          OTHER ROUTE:PIGGYBACK IV?
     Dates: start: 20180731, end: 20180731
  19. LASIX [Concomitant]
     Active Substance: FUROSEMIDE
  20. POTASSIUM CHLORIDE. [Concomitant]
     Active Substance: POTASSIUM CHLORIDE

REACTIONS (5)
  - Tremor [None]
  - Refusal of treatment by patient [None]
  - Bruxism [None]
  - Feeling cold [None]
  - Dizziness [None]

NARRATIVE: CASE EVENT DATE: 20180731
